FAERS Safety Report 6507181-4 (Version None)
Quarter: 2009Q4

REPORT INFORMATION
  Report Type: 
  Country: None (occurrence: None)
  Receive Date: 20091221
  Receipt Date: 20091210
  Transmission Date: 20100525
  Serious: Yes (Other)
  Sender: FDA-Public Use
  Company Number: PHHY2009DE54895

PATIENT
  Sex: Male
  Weight: 88 kg

DRUGS (5)
  1. ALISKIREN ALI+ [Suspect]
     Indication: HYPERTENSION
     Dosage: UNK
     Dates: start: 20081210
  2. VERAPAMIL [Interacting]
  3. DIURETICS [Concomitant]
  4. NITRATES [Concomitant]
  5. PLATELET AGGREGATION INHIBITORS [Concomitant]

REACTIONS (2)
  - ANGIOEDEMA [None]
  - DRUG THERAPEUTIC INCOMPATIBILITY [None]
